FAERS Safety Report 16038757 (Version 5)
Quarter: 2020Q2

REPORT INFORMATION
  Report Type: Spontaneous
  Country: JP (occurrence: JP)
  Receive Date: 20190305
  Receipt Date: 20200604
  Transmission Date: 20200713
  Serious: Yes (Death, Hospitalization, Disabling, Other)
  Sender: FDA-Public Use
  Company Number: JP-BRISTOL-MYERS SQUIBB COMPANY-BMS-2019-022879

PATIENT
  Age: 61 Year
  Sex: Male
  Weight: 68 kg

DRUGS (3)
  1. BACTRAMIN [Concomitant]
     Active Substance: SULFAMETHOXAZOLE\TRIMETHOPRIM
     Indication: PRODUCT USED FOR UNKNOWN INDICATION
     Dosage: UNK
     Route: 048
     Dates: start: 20190302
  2. OPDIVO [Suspect]
     Active Substance: NIVOLUMAB
     Indication: GASTRIC CANCER
     Dosage: 240 MG, Q2W
     Route: 041
     Dates: start: 20180803, end: 20181008
  3. BACTRAMIN [Concomitant]
     Active Substance: SULFAMETHOXAZOLE\TRIMETHOPRIM
     Indication: INFECTION PROPHYLAXIS
     Dosage: UNK
     Route: 048
     Dates: start: 20190204

REACTIONS (23)
  - Hypothyroidism [Unknown]
  - Shock [Unknown]
  - White blood cell count decreased [Unknown]
  - Pyrexia [Unknown]
  - Restlessness [Unknown]
  - Somnolence [Unknown]
  - Musculoskeletal pain [Unknown]
  - Liver disorder [Fatal]
  - Secondary adrenocortical insufficiency [Recovering/Resolving]
  - Hypotension [Unknown]
  - Pruritus [Unknown]
  - Jaundice [Fatal]
  - Platelet count decreased [Unknown]
  - Rash [Unknown]
  - Back pain [Unknown]
  - Chills [Unknown]
  - Hepatic failure [Fatal]
  - Hypopituitarism [Not Recovered/Not Resolved]
  - Malaise [Unknown]
  - Adrenocortical insufficiency acute [Unknown]
  - Lymphadenopathy [Unknown]
  - Anaemia [Unknown]
  - Arthralgia [Unknown]

NARRATIVE: CASE EVENT DATE: 20181009
